FAERS Safety Report 7875268-X (Version None)
Quarter: 2011Q4

REPORT INFORMATION
  Report Type: 
  Country: None (occurrence: None)
  Receive Date: 20111031
  Receipt Date: 20111024
  Transmission Date: 20120403
  Serious: Yes (Other)
  Sender: FDA-Public Use
  Company Number: US-AMGEN-USASP2011055215

PATIENT
  Age: 61 Year
  Sex: Female
  Weight: 108.84 kg

DRUGS (8)
  1. HYDROCORTISONE [Concomitant]
     Indication: ADDISON'S DISEASE
     Dosage: 20 MG, QD
  2. ENBREL [Suspect]
     Indication: PSORIASIS
     Dosage: UNK
     Dates: start: 20110301, end: 20110701
  3. THYROID TAB [Concomitant]
     Indication: HYPOTHYROIDISM
     Dosage: 60 MG, QD
  4. ZOLPIDEM TARTRATE [Concomitant]
     Indication: INSOMNIA
     Dosage: 10 MG, QHS
  5. CLONAZEPAM [Concomitant]
     Indication: ANXIETY
     Dosage: 0.5 MG, PRN
  6. HUMIRA [Concomitant]
     Indication: PSORIASIS
     Dosage: 40 MG, Q2WK
     Dates: start: 20070101, end: 20080401
  7. HUMIRA [Concomitant]
     Dosage: 40 MG, Q2WK
     Dates: start: 20110101, end: 20110301
  8. NORDITROPIN [Concomitant]
     Dosage: 0.4 MG, ONCE EVERY NIGHT

REACTIONS (5)
  - PALPITATIONS [None]
  - FIBROMYALGIA [None]
  - NAUSEA [None]
  - HYPERHIDROSIS [None]
  - PSORIASIS [None]
